FAERS Safety Report 8004062-4 (Version None)
Quarter: 2011Q4

REPORT INFORMATION
  Report Type: 
  Country: None (occurrence: None)
  Receive Date: 20111222
  Receipt Date: 20111114
  Transmission Date: 20120403
  Serious: Yes (Other)
  Sender: FDA-Public Use
  Company Number: CA-ASTRAZENECA-2011SE69085

PATIENT
  Age: 58 Year
  Sex: Female
  Weight: 59.9 kg

DRUGS (1)
  1. NEXIUM [Suspect]
     Route: 048

REACTIONS (13)
  - HYPOAESTHESIA [None]
  - PHOTOSENSITIVITY REACTION [None]
  - BURNING SENSATION [None]
  - FACIAL PAIN [None]
  - DIARRHOEA [None]
  - NAUSEA [None]
  - HYPERHIDROSIS [None]
  - EYE PAIN [None]
  - NERVOUSNESS [None]
  - HEADACHE [None]
  - DYSGEUSIA [None]
  - DYSPNOEA [None]
  - DIZZINESS [None]
